FAERS Safety Report 21655128 (Version 1)
Quarter: 2022Q4

REPORT INFORMATION
  Report Type: Spontaneous
  Country: US (occurrence: US)
  Receive Date: 20221129
  Receipt Date: 20221129
  Transmission Date: 20230112
  Serious: No
  Sender: FDA-Public Use
  Company Number: US-CADILA HEALTHCARE LIMITED-US-ZYDUS-074711

PATIENT

DRUGS (1)
  1. EXEMESTANE [Suspect]
     Active Substance: EXEMESTANE
     Indication: Breast cancer
     Dosage: 25 MILLIGRAM
     Route: 065

REACTIONS (5)
  - Bone loss [Unknown]
  - Hot flush [Unknown]
  - Weight increased [Unknown]
  - Alopecia [Unknown]
  - Pain [Unknown]
